FAERS Safety Report 25787485 (Version 1)
Quarter: 2025Q3

REPORT INFORMATION
  Report Type: Report from Study
  Country: US (occurrence: US)
  Receive Date: 20250910
  Receipt Date: 20250910
  Transmission Date: 20251021
  Serious: Yes (Hospitalization, Other)
  Sender: BIOCRYST PHARMACEUTICALS
  Company Number: US-BIOCRYST PHARMACEUTICALS, INC.-2025BCR01045

PATIENT

DRUGS (27)
  1. ORLADEYO [Suspect]
     Active Substance: BEROTRALSTAT HYDROCHLORIDE
     Indication: Hereditary angioedema with normal C1 esterase inhibitor
     Dosage: 150 MG, QD
     Route: 048
     Dates: start: 20250430
  2. ALBUTEROL SULFATE [Concomitant]
     Active Substance: ALBUTEROL SULFATE
     Indication: Asthma
  3. AMLODIPINE BESYLATE [Concomitant]
     Active Substance: AMLODIPINE BESYLATE
     Dosage: 10 MG, QD
     Route: 048
  4. CARVEDILOL [Concomitant]
     Active Substance: CARVEDILOL
     Dosage: 12.5 MG, BID
     Route: 048
  5. CLONAZEPAM [Concomitant]
     Active Substance: CLONAZEPAM
     Dosage: 1 MG, QD
     Route: 048
  6. EPIPEN [Concomitant]
     Active Substance: EPINEPHRINE
  7. ESCITALOPRAM [Concomitant]
     Active Substance: ESCITALOPRAM OXALATE
     Dosage: 10 MG, QD
     Route: 048
  8. FIRAZYR [Concomitant]
     Active Substance: ICATIBANT ACETATE
     Indication: Hereditary angioedema
     Route: 058
  9. OMEPRAZOLE [Concomitant]
     Active Substance: OMEPRAZOLE
     Dosage: 40 MG, QD
     Route: 048
  10. PANTOPRAZOLE [Concomitant]
     Active Substance: PANTOPRAZOLE
     Dosage: 40 MG, QD
     Route: 048
  11. ROSUVASTATIN [Concomitant]
     Active Substance: ROSUVASTATIN
     Dosage: 40 MG, QD
     Route: 048
  12. TEZSPIRE [Concomitant]
     Active Substance: TEZEPELUMAB-EKKO
     Indication: Asthma
     Dosage: 210 MG, QMTH
     Route: 058
     Dates: start: 2023
  13. TEZSPIRE [Concomitant]
     Active Substance: TEZEPELUMAB-EKKO
     Indication: Chronic obstructive pulmonary disease
  14. TAKHZYRO [Concomitant]
     Active Substance: LANADELUMAB-FLYO
     Indication: Hereditary angioedema with normal C1 esterase inhibitor
     Dosage: 300 MG, QOWK
     Route: 058
     Dates: start: 202501
  15. SYMBICORT [Concomitant]
     Active Substance: BUDESONIDE\FORMOTEROL FUMARATE DIHYDRATE
     Indication: Asthma
     Dosage: UNK, BID
  16. MACA [LEPIDIUM MEYENII] [Concomitant]
     Route: 048
  17. BEETROOT [Concomitant]
     Route: 048
  18. FIBER THERAPY (CALCIUM POLYCARBOPHIL) [Concomitant]
     Active Substance: CALCIUM POLYCARBOPHIL
     Route: 048
  19. FLONASE ALLERGY RELIEF [Concomitant]
     Active Substance: FLUTICASONE PROPIONATE
     Dosage: 50 MICROGRAM, BID
     Route: 045
  20. FAMOTIDINE [Concomitant]
     Active Substance: FAMOTIDINE
     Dosage: 20 MG, QD
     Route: 048
  21. BUSPIRONE HCL [Concomitant]
     Active Substance: BUSPIRONE HYDROCHLORIDE
     Dosage: 10 MG, BID
     Route: 048
  22. ALLOPURINOL [Concomitant]
     Active Substance: ALLOPURINOL
     Dosage: 300 MG, QD
     Route: 048
  23. COLESTIPOL HYDROCHLORIDE [Concomitant]
     Active Substance: COLESTIPOL HYDROCHLORIDE
     Dosage: 5 G, BID
     Route: 048
  24. SERTRALINE HYDROCHLORIDE [Concomitant]
     Active Substance: SERTRALINE HYDROCHLORIDE
     Dosage: 50 MG, QD
     Route: 048
  25. JARDIANCE [Concomitant]
     Active Substance: EMPAGLIFLOZIN
     Dosage: 10 MG, QD
     Route: 048
  26. CETIRIZINE HCL [Concomitant]
     Active Substance: CETIRIZINE HYDROCHLORIDE
     Route: 048
  27. HYDRALAZINE HCL [Concomitant]
     Active Substance: HYDRALAZINE HYDROCHLORIDE
     Route: 048

REACTIONS (9)
  - Rectal haemorrhage [Unknown]
  - Hereditary angioedema [Recovered/Resolved]
  - Respiratory failure [Recovered/Resolved]
  - Abdominal distension [Unknown]
  - Asthma [Unknown]
  - Vomiting [Unknown]
  - Abdominal discomfort [Unknown]
  - Frequent bowel movements [Unknown]
  - Product dose omission issue [Recovered/Resolved]

NARRATIVE: CASE EVENT DATE: 20250101
